FAERS Safety Report 8949605 (Version 1)
Quarter: 2012Q4

REPORT INFORMATION
  Report Type: 
  Country: US (occurrence: US)
  Receive Date: 20121206
  Receipt Date: 20121206
  Transmission Date: 20130627
  Serious: Yes (Other)
  Sender: FDA-Public Use
  Company Number: PHEH2012US021830

PATIENT
  Age: 69 Year
  Sex: Female

DRUGS (7)
  1. TOBI [Suspect]
     Indication: ALPHA-1 ANTI-TRYPSIN DEFICIENCY
     Dosage: 300 mg, BID
     Dates: start: 20121002, end: 20121030
  2. TOBI [Suspect]
     Dosage: 300 UNK,
     Dates: start: 20121101, end: 20121108
  3. PROAIR [Suspect]
  4. SPIRIVA [Concomitant]
  5. SYMBICORT [Concomitant]
  6. ALBUTEROL [Concomitant]
  7. ZEMAIRA [Concomitant]
     Indication: ALPHA-1 ANTI-TRYPSIN DEFICIENCY
     Dosage: UNK, BIW
     Route: 042

REACTIONS (5)
  - Dyspnoea [Recovered/Resolved]
  - Chest discomfort [Recovered/Resolved]
  - Wheezing [Recovered/Resolved]
  - Dysphonia [Recovered/Resolved]
  - Cough [Recovered/Resolved]
